FAERS Safety Report 5117146-5 (Version None)
Quarter: 2006Q3

REPORT INFORMATION
  Report Type: 
  Country: None (occurrence: None)
  Receive Date: 20060927
  Receipt Date: 20060927
  Transmission Date: 20061208
  Serious: Yes (Hospitalization)
  Sender: FDA-Public Use
  Company Number: None

PATIENT
  Sex: Male
  Weight: 96.2533 kg

DRUGS (1)
  1. HYDRALAZINE HCL 25MG TAB [Suspect]
     Indication: HYPERTENSION
     Dosage: 25 MG QID PO
     Route: 048
     Dates: start: 20040217, end: 20060803

REACTIONS (6)
  - ARTHRALGIA [None]
  - ASTHENIA [None]
  - INFLAMMATION [None]
  - LUPUS-LIKE SYNDROME [None]
  - MYALGIA [None]
  - PAIN [None]
